FAERS Safety Report 6081475-1 (Version None)
Quarter: 2009Q1

REPORT INFORMATION
  Report Type: 
  Country: None (occurrence: None)
  Receive Date: 20090213
  Receipt Date: 20090211
  Transmission Date: 20090719
  Serious: Yes (Death)
  Sender: FDA-Public Use
  Company Number: 2008SP006474

PATIENT
  Age: 28 Year
  Sex: Male

DRUGS (3)
  1. PEG-INTRON [Suspect]
     Indication: HEPATITIS C
     Dosage: 120 MCG;QW;SC
     Route: 058
     Dates: start: 20070921, end: 20071026
  2. REBETOL [Suspect]
     Indication: HEPATITIS C
     Dosage: 1000 MCG;QD;PO
     Route: 048
     Dates: start: 20070921, end: 20071026
  3. COCAON (COCAINE) (COCAINE) [Suspect]
     Indication: DRUG USE FOR UNKNOWN INDICATION

REACTIONS (5)
  - COMPLETED SUICIDE [None]
  - DRUG ABUSE [None]
  - FALL [None]
  - MULTIPLE INJURIES [None]
  - TREATMENT NONCOMPLIANCE [None]
